FAERS Safety Report 6310894-0 (Version None)
Quarter: 2009Q3

REPORT INFORMATION
  Report Type: 
  Country: None (occurrence: None)
  Receive Date: 20090812
  Receipt Date: 20090726
  Transmission Date: 20100115
  Serious: Yes (Hospitalization)
  Sender: FDA-Public Use
  Company Number: 1-19303138

PATIENT
  Age: 44 Year
  Sex: Female

DRUGS (1)
  1. METHIMAZOLE [Suspect]
     Indication: HYPERTHYROIDISM
     Dosage: 15 MG DAILY, ORAL
     Route: 048
     Dates: start: 19990101, end: 20040301

REACTIONS (16)
  - ANTINEUTROPHIL CYTOPLASMIC ANTIBODY [None]
  - ANTINEUTROPHIL CYTOPLASMIC ANTIBODY POSITIVE [None]
  - ARTHRALGIA [None]
  - CHEST X-RAY ABNORMAL [None]
  - DYSPNOEA [None]
  - EXOPHTHALMOS [None]
  - GLOMERULONEPHRITIS [None]
  - GOITRE [None]
  - HAEMATURIA [None]
  - HAEMOGLOBIN DECREASED [None]
  - HAEMOPTYSIS [None]
  - LABORATORY TEST ABNORMAL [None]
  - PULMONARY ALVEOLAR HAEMORRHAGE [None]
  - PULMONARY HAEMORRHAGE [None]
  - RED BLOOD CELL SEDIMENTATION RATE INCREASED [None]
  - VASCULITIS [None]
